FAERS Safety Report 11040269 (Version 1)
Quarter: 2015Q2

REPORT INFORMATION
  Report Type: Report from Study
  Country: BR (occurrence: BR)
  Receive Date: 20150416
  Receipt Date: 20150416
  Transmission Date: 20150821
  Serious: Yes (Other)
  Sender: FDA-Public Use
  Company Number: BR-ABBVIE-15K-020-1374484-00

PATIENT
  Sex: Female
  Weight: 65 kg

DRUGS (4)
  1. CALCIUM [Concomitant]
     Active Substance: CALCIUM
     Indication: BONE DISORDER
     Route: 048
     Dates: start: 2013
  2. ENDOFOLIN [Concomitant]
     Active Substance: FOLIC ACID
     Indication: ANAEMIA PROPHYLAXIS
     Route: 048
     Dates: start: 2013
  3. HUMIRA [Suspect]
     Active Substance: ADALIMUMAB
     Indication: RHEUMATOID ARTHRITIS
     Route: 058
     Dates: start: 20130423, end: 20150110
  4. TECNOMET [Concomitant]
     Active Substance: METHOTREXATE
     Indication: BONE DISORDER
     Route: 048
     Dates: start: 2013

REACTIONS (2)
  - Thyroid cancer [Recovering/Resolving]
  - Thyroid disorder [Recovering/Resolving]
